FAERS Safety Report 14236600 (Version 1)
Quarter: 2017Q4

REPORT INFORMATION
  Report Type: Spontaneous
  Country: FR (occurrence: FR)
  Receive Date: 20171129
  Receipt Date: 20171129
  Transmission Date: 20180321
  Serious: Yes (Hospitalization)
  Sender: FDA-Public Use
  Company Number: FR-SA-2017SA236488

PATIENT
  Age: 80 Year
  Sex: Male

DRUGS (13)
  1. LEVEMIR [Concomitant]
     Active Substance: INSULIN DETEMIR
     Dosage: DOSE: 20U MORNING, 22 U IN THE EVENING?LONG COURSE
     Route: 058
  2. DIFFU K [Concomitant]
     Active Substance: POTASSIUM CHLORIDE
     Dosage: LONG COURSE
     Route: 048
  3. NOVORAPID [Concomitant]
     Active Substance: INSULIN ASPART
     Dosage: DOSE: 3X DAILY ACCORDING TO DEXTRO
     Route: 058
  4. BISOCE [Concomitant]
     Active Substance: BISOPROLOL
     Dosage: DOSE: 1 IN THE MORNING?START DATE: LONG COURSE
     Route: 048
  5. TAHOR [Concomitant]
     Active Substance: ATORVASTATIN CALCIUM
     Dosage: DOSE: 1 IN THE MORNING?LONG COURSE
     Route: 048
  6. RIFADINE [Suspect]
     Active Substance: RIFAMPIN
     Indication: POST PROCEDURAL INFECTION
     Route: 048
     Dates: start: 20161126, end: 20170112
  7. KARDEGIC [Concomitant]
     Active Substance: ASPIRIN DL-LYSINE
     Dosage: DOSE: 1 AT NOON?LONG COURSE
     Route: 048
  8. TRIATEC [Concomitant]
     Active Substance: RAMIPRIL
     Route: 048
  9. LASILIX SPECIAL [Concomitant]
     Active Substance: FUROSEMIDE
     Route: 048
  10. DAFALGAN [Concomitant]
     Active Substance: ACETAMINOPHEN
     Dosage: DOSE: 2 MORNING 2 NOON 2 EVENING 2 NIGHT
     Route: 048
     Dates: start: 20161126
  11. ZYVOXID [Suspect]
     Active Substance: LINEZOLID
     Indication: POST PROCEDURAL INFECTION
     Route: 048
     Dates: start: 20161126, end: 20170112
  12. OGAST [Concomitant]
     Active Substance: LANSOPRAZOLE
     Dosage: LONG COURSE
     Route: 048
  13. OXYNORMORO [Concomitant]
     Active Substance: OXYCODONE HYDROCHLORIDE
     Dosage: DOSE: MORNING 1 NOON, 1 EVENING
     Route: 048
     Dates: start: 20161126, end: 20170105

REACTIONS (1)
  - Anaemia [Recovered/Resolved]

NARRATIVE: CASE EVENT DATE: 20170102
